FAERS Safety Report 14064979 (Version 1)
Quarter: 2017Q4

REPORT INFORMATION
  Report Type: Report from Study
  Country: JP (occurrence: JP)
  Receive Date: 20171009
  Receipt Date: 20171009
  Transmission Date: 20180321
  Serious: Yes (Hospitalization, Other)
  Sender: FDA-Public Use
  Company Number: JP-TEVA-811417ROM

PATIENT
  Age: 64 Year
  Sex: Male

DRUGS (2)
  1. SODIUM THIOSULFATE [Concomitant]
     Active Substance: SODIUM THIOSULFATE
     Indication: SQUAMOUS CELL CARCINOMA OF THE TONGUE
     Route: 042
  2. CISPLATIN. [Suspect]
     Active Substance: CISPLATIN
     Indication: SQUAMOUS CELL CARCINOMA OF THE TONGUE
     Dosage: INFUSION
     Route: 013

REACTIONS (3)
  - Laryngeal oedema [Recovered/Resolved]
  - Infection [Recovered/Resolved]
  - Osteoradionecrosis [Recovered/Resolved]
